FAERS Safety Report 4989287-4 (Version None)
Quarter: 2006Q2

REPORT INFORMATION
  Report Type: 
  Country: None (occurrence: None)
  Receive Date: 20060425
  Receipt Date: 20060410
  Transmission Date: 20061013
  Serious: Yes (Other)
  Sender: FDA-Public Use
  Company Number: 2005036965

PATIENT
  Sex: Male

DRUGS (4)
  1. NEURONTIN [Suspect]
     Indication: PAIN
     Dosage: 2400 MG (800 MG, 3 IN 1 D)
     Dates: start: 20000101, end: 20040101
  2. SERZONE [Suspect]
     Indication: DEPRESSION
     Dosage: 450 MG (150 MG, 1 IN AM, 2 AT HS), ORAL
     Route: 048
  3. NIASPAN [Concomitant]
  4. CLONAZEPAM [Concomitant]

REACTIONS (28)
  - ABDOMINAL PAIN [None]
  - ANGINA PECTORIS [None]
  - BALANCE DISORDER [None]
  - BURNING SENSATION [None]
  - CHOKING [None]
  - CONFUSIONAL STATE [None]
  - CONVULSION [None]
  - COORDINATION ABNORMAL [None]
  - DIFFICULTY IN WALKING [None]
  - DYSARTHRIA [None]
  - DYSPHAGIA [None]
  - DYSTONIA [None]
  - FATIGUE [None]
  - FEELING ABNORMAL [None]
  - HEADACHE [None]
  - HYPERTENSION [None]
  - HYPOAESTHESIA [None]
  - JOINT STIFFNESS [None]
  - LOSS OF LIBIDO [None]
  - MEMORY IMPAIRMENT [None]
  - MYDRIASIS [None]
  - PARAESTHESIA [None]
  - ROAD TRAFFIC ACCIDENT [None]
  - SOMNOLENCE [None]
  - SPEECH DISORDER [None]
  - TREMOR [None]
  - VERTIGO [None]
  - VISION BLURRED [None]
